FAERS Safety Report 5258767-9 (Version None)
Quarter: 2007Q1

REPORT INFORMATION
  Report Type: 
  Country: None (occurrence: None)
  Receive Date: 20070306
  Receipt Date: 20070306
  Transmission Date: 20070707
  Serious: Yes (Hospitalization)
  Sender: FDA-Public Use
  Company Number: None

PATIENT
  Age: 68 Year
  Sex: Female
  Weight: 128 kg

DRUGS (1)
  1. RIFAMPIN [Suspect]
     Indication: OSTEOMYELITIS
     Dosage: 600MG  QAM   PO
     Route: 048
     Dates: start: 20070114, end: 20070222

REACTIONS (1)
  - THROMBOCYTOPENIA [None]
